FAERS Safety Report 5160070-2 (Version None)
Quarter: 2006Q4

REPORT INFORMATION
  Report Type: 
  Country: None (occurrence: None)
  Receive Date: 20061129
  Receipt Date: 20060911
  Transmission Date: 20070319
  Serious: No
  Sender: FDA-Public Use
  Company Number: US-GLAXOSMITHKLINE-A0619614A

PATIENT
  Sex: Female

DRUGS (1)
  1. WELLBUTRIN [Suspect]
     Indication: DRUG USE FOR UNKNOWN INDICATION
     Dosage: 100MG UNKNOWN
     Route: 048

REACTIONS (3)
  - GINGIVAL PAIN [None]
  - SENSITIVITY OF TEETH [None]
  - TOOTHACHE [None]
